FAERS Safety Report 8127961-1 (Version None)
Quarter: 2011Q4

REPORT INFORMATION
  Report Type: 
  Country: None (occurrence: None)
  Receive Date: 20111230
  Receipt Date: 20110929
  Transmission Date: 20120403
  Serious: Yes (Other)
  Sender: FDA-Public Use
  Company Number: 303246USA

PATIENT
  Sex: Male

DRUGS (1)
  1. VENLAFAXINE [Suspect]
     Dosage: (150 MG)

REACTIONS (5)
  - PARAESTHESIA [None]
  - DRUG ADMINISTRATION ERROR [None]
  - DIZZINESS [None]
  - WITHDRAWAL SYNDROME [None]
  - FREQUENT BOWEL MOVEMENTS [None]
